FAERS Safety Report 11235415 (Version 1)
Quarter: 2015Q3

REPORT INFORMATION
  Report Type: Spontaneous
  Country: GB (occurrence: GB)
  Receive Date: 20150702
  Receipt Date: 20150702
  Transmission Date: 20151125
  Serious: Yes (Other)
  Sender: FDA-Public Use
  Company Number: GB-JNJFOC-20150608060

PATIENT
  Age: 42 Year
  Sex: Female

DRUGS (3)
  1. METHOTREXATE [Concomitant]
     Active Substance: METHOTREXATE
     Route: 065
  2. NAPROXEN. [Concomitant]
     Active Substance: NAPROXEN
     Route: 065
  3. USTEKINUMAB [Suspect]
     Active Substance: USTEKINUMAB
     Indication: PSORIASIS
     Dosage: USED FOR 14 MONTHS
     Route: 058

REACTIONS (1)
  - Sarcoidosis [Recovering/Resolving]
